FAERS Safety Report 23595908 (Version 1)
Quarter: 2024Q1

REPORT INFORMATION
  Report Type: Spontaneous
  Country: US (occurrence: US)
  Receive Date: 20240305
  Receipt Date: 20240305
  Transmission Date: 20240410
  Serious: No
  Sender: FDA-Public Use
  Company Number: US-PFIZER INC-202300290020

PATIENT
  Age: 81 Year
  Sex: Male

DRUGS (3)
  1. BOSULIF [Suspect]
     Active Substance: BOSUTINIB MONOHYDRATE
     Indication: Chronic myeloid leukaemia
     Dosage: 400 MG, DAILY (400MG TABLET- 1 TABLET DAILY)
     Route: 048
     Dates: start: 20220406, end: 20230828
  2. BOSULIF [Suspect]
     Active Substance: BOSUTINIB MONOHYDRATE
     Dosage: 400 MG, DAILY (100MG TABLET - TAKE 4 TABLETS DAILY)
     Route: 048
     Dates: start: 20231031
  3. BOSULIF [Suspect]
     Active Substance: BOSUTINIB MONOHYDRATE
     Dosage: 300 MG, DAILY (100MG TABLET - 3 TABLETS DAILY)
     Route: 048

REACTIONS (1)
  - Nausea [Unknown]
